FAERS Safety Report 13349855 (Version 1)
Quarter: 2017Q1

REPORT INFORMATION
  Report Type: Spontaneous
  Country: US (occurrence: US)
  Receive Date: 20170320
  Receipt Date: 20170320
  Transmission Date: 20170429
  Serious: No
  Sender: FDA-Public Use
  Company Number: US-APOTEX-2016AP014997

PATIENT
  Sex: Male

DRUGS (1)
  1. SOTALOL HYDROCHLORIDE. [Suspect]
     Active Substance: SOTALOL HYDROCHLORIDE
     Indication: CARDIAC DISORDER
     Dosage: 1 AND HALF TABLETS IN THE MORNING AND 1 TABLET IN THE EVENING
     Route: 065
     Dates: start: 201601

REACTIONS (3)
  - Heart rate increased [Unknown]
  - Drug ineffective [Unknown]
  - Blood pressure increased [Unknown]
